FAERS Safety Report 15075107 (Version 1)
Quarter: 2018Q2

REPORT INFORMATION
  Report Type: Spontaneous
  Country: US (occurrence: US)
  Receive Date: 20180627
  Receipt Date: 20180627
  Transmission Date: 20180711
  Serious: Yes (Other)
  Sender: FDA-Public Use
  Company Number: US-SAOL THERAPEUTICS-2017SAO03431

PATIENT
  Sex: Male
  Weight: 136.5 kg

DRUGS (4)
  1. FENTANYL. [Suspect]
     Active Substance: FENTANYL
     Dosage: 250 ?G, \DAY
     Route: 037
     Dates: start: 20171130
  2. MORPHINE [Suspect]
     Active Substance: MORPHINE
     Dosage: 6 MG, \DAY
     Route: 037
     Dates: end: 20171130
  3. BACLOFEN. [Suspect]
     Active Substance: BACLOFEN
     Indication: PAIN
     Dosage: 50 ?G, \DAY
     Route: 037
     Dates: start: 20171130
  4. BACLOFEN. [Suspect]
     Active Substance: BACLOFEN
     Indication: MUSCLE SPASMS

REACTIONS (2)
  - Device dislocation [Recovering/Resolving]
  - Discomfort [Recovering/Resolving]
